FAERS Safety Report 18581004 (Version 1)
Quarter: 2020Q4

REPORT INFORMATION
  Report Type: Spontaneous
  Country: ES (occurrence: ES)
  Receive Date: 20201204
  Receipt Date: 20201204
  Transmission Date: 20210114
  Serious: Yes (Hospitalization)
  Sender: FDA-Public Use
  Company Number: NVSC2020ES189308

PATIENT
  Age: 66 Year
  Sex: Female

DRUGS (5)
  1. FLERUDIN [Suspect]
     Active Substance: FLUNARIZINE HYDROCHLORIDE
     Indication: DIZZINESS
     Dosage: 5 MG, QD
     Route: 065
     Dates: start: 20200526
  2. CALCIUM [Concomitant]
     Active Substance: CALCIUM
     Indication: OSTEOPOROSIS
     Dosage: UNK
     Route: 065
  3. VIT D [Concomitant]
     Active Substance: VITAMIN D NOS
     Indication: OSTEOPOROSIS
     Dosage: UNK
     Route: 065
  4. SERTRALINE [Suspect]
     Active Substance: SERTRALINE HYDROCHLORIDE
     Indication: PRODUCT USED FOR UNKNOWN INDICATION
     Dosage: UNK
     Route: 065
     Dates: start: 20200518
  5. ZOLPIDEM [Suspect]
     Active Substance: ZOLPIDEM TARTRATE
     Indication: PRODUCT USED FOR UNKNOWN INDICATION
     Dosage: UNK (FOR 2 WEEKS AND A HALF)
     Route: 065

REACTIONS (4)
  - Blood sodium decreased [Recovered/Resolved]
  - Pulmonary embolism [Recovered/Resolved]
  - Catatonia [Recovered/Resolved]
  - Blood potassium decreased [Recovered/Resolved]
